FAERS Safety Report 23869134 (Version 1)
Quarter: 2024Q2

REPORT INFORMATION
  Report Type: Spontaneous
  Country: KR (occurrence: KR)
  Receive Date: 20240517
  Receipt Date: 20240517
  Transmission Date: 20240716
  Serious: Yes (Other)
  Sender: FDA-Public Use
  Company Number: KR-002147023-NVSC2024KR103643

PATIENT
  Age: 85 Year
  Sex: Male

DRUGS (2)
  1. EXELON [Suspect]
     Active Substance: RIVASTIGMINE TARTRATE
     Indication: Product used for unknown indication
     Dosage: UNK
     Route: 065
     Dates: start: 202312
  2. RIVASTIGMINE [Suspect]
     Active Substance: RIVASTIGMINE
     Indication: Cognitive disorder
     Dosage: UNK
     Route: 065
     Dates: start: 202110

REACTIONS (5)
  - Dementia with Lewy bodies [Unknown]
  - Compression fracture [Unknown]
  - Femoral neck fracture [Unknown]
  - Delirium [Unknown]
  - Fall [Unknown]

NARRATIVE: CASE EVENT DATE: 20211101
